FAERS Safety Report 11272992 (Version 1)
Quarter: 2015Q2

REPORT INFORMATION
  Report Type: Spontaneous
  Country: US (occurrence: None)
  Receive Date: 20150625
  Receipt Date: 20150625
  Transmission Date: 20150821
  Serious: No
  Sender: FDA-Public Use
  Company Number: A-US2015-111859

PATIENT
  Age: 68 Year
  Sex: Female

DRUGS (2)
  1. VELETRI [Suspect]
     Active Substance: EPOPROSTENOL
     Indication: COR PULMONALE CHRONIC
     Dosage: 30 NG/KG, PER MIN
     Route: 042
     Dates: start: 20130817
  2. OPSUMIT [Suspect]
     Active Substance: MACITENTAN
     Indication: COR PULMONALE CHRONIC
     Route: 048

REACTIONS (6)
  - Nasopharyngitis [None]
  - Nasal congestion [None]
  - Pyrexia [None]
  - Cough [None]
  - Chest discomfort [None]
  - Bronchitis [None]
